FAERS Safety Report 5671795-4 (Version None)
Quarter: 2008Q1

REPORT INFORMATION
  Report Type: 
  Country: None (occurrence: None)
  Receive Date: 20080314
  Receipt Date: 20080229
  Transmission Date: 20080703
  Serious: Yes (Death, Hospitalization)
  Sender: FDA-Public Use
  Company Number: 232088J08USA

PATIENT
  Age: 49 Year
  Sex: Female

DRUGS (6)
  1. REBIF [Suspect]
     Indication: MULTIPLE SCLEROSIS
     Dosage: 44 MCG, 3 IN 1 WEEKS, SUBCUTANEOUS
     Route: 058
     Dates: start: 20020830
  2. ZIAC [Concomitant]
  3. NEURONTIN [Concomitant]
  4. ZANAFLEX [Concomitant]
  5. PREVACID [Concomitant]
  6. MOTRIN [Concomitant]

REACTIONS (3)
  - ANKLE FRACTURE [None]
  - CHOLELITHIASIS [None]
  - FALL [None]
